FAERS Safety Report 4918596-X (Version None)
Quarter: 2006Q1

REPORT INFORMATION
  Report Type: 
  Country: None (occurrence: None)
  Receive Date: 20060216
  Receipt Date: 20051220
  Transmission Date: 20060701
  Serious: Yes (Hospitalization, Other)
  Sender: FDA-Public Use
  Company Number: US200602001684

PATIENT
  Sex: Female
  Weight: 90.7 kg

DRUGS (4)
  1. HUMALOG [Suspect]
     Indication: DIABETES MELLITUS NON-INSULIN-DEPENDENT
     Dosage: 3 U, 3/D,
     Dates: start: 20010101
  2. HUMULIN 70/30 [Suspect]
     Indication: DIABETES MELLITUS NON-INSULIN-DEPENDENT
     Dates: start: 19900101, end: 20010101
  3. HUMALOG PEN (HUMALOG PEN) PEN, DISPOSABLE [Concomitant]
  4. LANTUS [Concomitant]

REACTIONS (7)
  - BACK DISORDER [None]
  - BODY HEIGHT DECREASED [None]
  - CORONARY ARTERY OCCLUSION [None]
  - FALL [None]
  - HIP FRACTURE [None]
  - PHARMACEUTICAL PRODUCT COMPLAINT [None]
  - THROMBOSIS [None]
